FAERS Safety Report 6865080-2 (Version None)
Quarter: 2010Q3

REPORT INFORMATION
  Report Type: 
  Country: None (occurrence: None)
  Receive Date: 20100721
  Receipt Date: 20080814
  Transmission Date: 20110219
  Serious: Yes (Other)
  Sender: FDA-Public Use
  Company Number: US-PFIZER INC-2008030537

PATIENT
  Sex: Female
  Weight: 73.5 kg

DRUGS (4)
  1. CHANTIX [Suspect]
     Indication: SMOKING CESSATION THERAPY
     Dates: start: 20080324
  2. LAMICTAL [Concomitant]
  3. CYMBALTA [Concomitant]
  4. ANTIBIOTICS [Concomitant]
     Indication: SINUSITIS

REACTIONS (4)
  - ADVERSE EVENT [None]
  - DEPRESSION [None]
  - HEADACHE [None]
  - SUICIDAL BEHAVIOUR [None]
